FAERS Safety Report 18446053 (Version 2)
Quarter: 2020Q4

REPORT INFORMATION
  Report Type: Spontaneous
  Country: US (occurrence: US)
  Receive Date: 20201030
  Receipt Date: 20201110
  Transmission Date: 20210114
  Serious: No
  Sender: FDA-Public Use
  Company Number: US-BEH-2020124378

PATIENT
  Age: 60 Year
  Sex: Female
  Weight: 106.12 kg

DRUGS (5)
  1. ZEMAIRA [Suspect]
     Active Substance: .ALPHA.1-PROTEINASE INHIBITOR HUMAN
     Indication: ALPHA-1 ANTITRYPSIN DEFICIENCY
     Dosage: 6180 MILLIGRAM, QW
     Route: 042
     Dates: start: 20200806
  2. ZEMAIRA [Suspect]
     Active Substance: .ALPHA.1-PROTEINASE INHIBITOR HUMAN
     Indication: ALPHA-1 ANTITRYPSIN DEFICIENCY
     Dosage: 6180 MILLIGRAM, QW
     Route: 042
     Dates: start: 20200806
  3. ZEMAIRA [Suspect]
     Active Substance: .ALPHA.1-PROTEINASE INHIBITOR HUMAN
     Dosage: 6180 WEEKLY
     Route: 042
     Dates: start: 20191009
  4. OXYGEN. [Concomitant]
     Active Substance: OXYGEN
     Dosage: 4 LITER
  5. ZEMAIRA [Suspect]
     Active Substance: .ALPHA.1-PROTEINASE INHIBITOR HUMAN
     Dosage: 6180 WEEKLY
     Route: 042
     Dates: start: 20191009

REACTIONS (1)
  - Pulmonary pain [Not Recovered/Not Resolved]

NARRATIVE: CASE EVENT DATE: 202004
